FAERS Safety Report 20164986 (Version 4)
Quarter: 2022Q1

REPORT INFORMATION
  Report Type: Spontaneous
  Country: ES (occurrence: ES)
  Receive Date: 20211209
  Receipt Date: 20220104
  Transmission Date: 20220423
  Serious: Yes (Death, Hospitalization)
  Sender: FDA-Public Use
  Company Number: ES-CELGENE-ESP-20211200831

PATIENT
  Age: 78 Year
  Sex: Male

DRUGS (2)
  1. AZACITIDINE [Suspect]
     Active Substance: AZACITIDINE
     Indication: Acute myeloid leukaemia
     Route: 058
     Dates: start: 20210920, end: 20211201
  2. PEVONEDISTAT [Suspect]
     Active Substance: PEVONEDISTAT
     Indication: Acute myeloid leukaemia
     Route: 041
     Dates: start: 20210920, end: 20211201

REACTIONS (1)
  - Central nervous system leukaemia [Fatal]

NARRATIVE: CASE EVENT DATE: 20211122
